FAERS Safety Report 13899122 (Version 1)
Quarter: 2017Q3

REPORT INFORMATION
  Report Type: Spontaneous
  Country: US (occurrence: US)
  Receive Date: 20170823
  Receipt Date: 20170823
  Transmission Date: 20171127
  Serious: No
  Sender: FDA-Public Use
  Company Number: US-JAZZ-2017-US-007649

PATIENT
  Sex: Female

DRUGS (14)
  1. XYREM [Suspect]
     Active Substance: SODIUM OXYBATE
     Dosage: 4.5G, BID
     Route: 048
     Dates: start: 201701
  2. MAGNESIUM GLYCINATE [Concomitant]
     Active Substance: MAGNESIUM GLYCINATE
  3. XYREM [Suspect]
     Active Substance: SODIUM OXYBATE
     Dosage: DOSE ADJUSTMENT
     Route: 048
     Dates: start: 201701, end: 201701
  4. DRAMAMINE [Concomitant]
     Active Substance: DIMENHYDRINATE
  5. L-TYROSINE [Concomitant]
  6. LAMOTRIGINE. [Concomitant]
     Active Substance: LAMOTRIGINE
  7. NUVIGIL [Concomitant]
     Active Substance: ARMODAFINIL
  8. ADDERALL [Concomitant]
     Active Substance: AMPHETAMINE ASPARTATE\AMPHETAMINE SULFATE\DEXTROAMPHETAMINE SACCHARATE\DEXTROAMPHETAMINE SULFATE
  9. XYREM [Suspect]
     Active Substance: SODIUM OXYBATE
     Indication: NARCOLEPSY
     Dosage: 2.25G, BID
     Route: 048
     Dates: start: 201701, end: 201701
  10. CHOLINE CITRATE [Concomitant]
  11. FISH OIL [Concomitant]
     Active Substance: FISH OIL
  12. IBUPROFEN. [Concomitant]
     Active Substance: IBUPROFEN
  13. VALIUM [Concomitant]
     Active Substance: DIAZEPAM
  14. LIDOCAINE. [Concomitant]
     Active Substance: LIDOCAINE

REACTIONS (3)
  - Feeling abnormal [Not Recovered/Not Resolved]
  - Paraesthesia [Not Recovered/Not Resolved]
  - Libido decreased [Not Recovered/Not Resolved]
